FAERS Safety Report 13605461 (Version 1)
Quarter: 2017Q2

REPORT INFORMATION
  Report Type: Spontaneous
  Country: US (occurrence: US)
  Receive Date: 20170602
  Receipt Date: 20170602
  Transmission Date: 20170830
  Serious: Yes (Other)
  Sender: FDA-Public Use
  Company Number: None

PATIENT
  Age: 66 Year
  Sex: Female
  Weight: 99.9 kg

DRUGS (13)
  1. ARAVA [Concomitant]
     Active Substance: LEFLUNOMIDE
  2. SINGULAIR [Concomitant]
     Active Substance: MONTELUKAST SODIUM
  3. SOMA [Concomitant]
     Active Substance: CARISOPRODOL
  4. FOLIC ACID. [Concomitant]
     Active Substance: FOLIC ACID
  5. EVOXAC [Concomitant]
     Active Substance: CEVIMELINE HYDROCHLORIDE
  6. BARIACTRIC CHEWABLE MULTI-VITAMIN WITH MINERALS [Concomitant]
  7. FLONASE [Concomitant]
     Active Substance: FLUTICASONE PROPIONATE
  8. CHLORAPREP WITH TINT [Suspect]
     Active Substance: CHLORHEXIDINE GLUCONATE\ISOPROPYL ALCOHOL
     Indication: INFECTION PROPHYLAXIS
     Dosage: QUANTITY:1 APPLICATOR;?
     Route: 061
     Dates: start: 20170426, end: 20170426
  9. NORCO [Concomitant]
     Active Substance: ACETAMINOPHEN\HYDROCODONE BITARTRATE
  10. LEXAPRO [Concomitant]
     Active Substance: ESCITALOPRAM OXALATE
  11. MOBIC [Concomitant]
     Active Substance: MELOXICAM
  12. LIDOCAINE 5% PATCH [Concomitant]
     Active Substance: LIDOCAINE
  13. LIDOCAINE 5% CREAM [Concomitant]

REACTIONS (4)
  - Chemical burn [None]
  - Application site burn [None]
  - Impaired work ability [None]
  - Wound [None]

NARRATIVE: CASE EVENT DATE: 20170426
